FAERS Safety Report 8433781-0 (Version None)
Quarter: 2012Q2

REPORT INFORMATION
  Report Type: 
  Country: None (occurrence: None)
  Receive Date: 20120613
  Receipt Date: 20120531
  Transmission Date: 20120825
  Serious: No
  Sender: FDA-Public Use
  Company Number: CH-ASTRAZENECA-2012SE36632

PATIENT
  Age: 54 Year
  Sex: Female

DRUGS (1)
  1. SYMBICORT [Suspect]
     Route: 055

REACTIONS (2)
  - EXPIRED DRUG ADMINISTERED [None]
  - DIPLOPIA [None]
